FAERS Safety Report 9622235 (Version 1)
Quarter: 2013Q4

REPORT INFORMATION
  Report Type: Spontaneous
  Country: US (occurrence: US)
  Receive Date: 20131015
  Receipt Date: 20131015
  Transmission Date: 20140711
  Serious: Yes (Hospitalization)
  Sender: FDA-Public Use
  Company Number: US-PFIZER INC-2013292127

PATIENT
  Age: 62 Year
  Sex: Female

DRUGS (2)
  1. PHENYTOIN [Suspect]
     Indication: GRAND MAL CONVULSION
     Dosage: 300 MG, DAILY
  2. PHENYTOIN [Suspect]
     Dosage: 200 MG, DAILY

REACTIONS (16)
  - Incorrect dose administered [Unknown]
  - Toxicity to various agents [Recovering/Resolving]
  - Encephalopathy [Recovering/Resolving]
  - Asterixis [Recovered/Resolved]
  - Mental status changes [Recovering/Resolving]
  - Cerebellar syndrome [Recovering/Resolving]
  - Ataxia [Recovering/Resolving]
  - Nystagmus [Recovering/Resolving]
  - Reflexes abnormal [Recovering/Resolving]
  - Dysarthria [Recovering/Resolving]
  - Disturbance in attention [Recovering/Resolving]
  - Somnolence [Recovering/Resolving]
  - Dizziness [Recovering/Resolving]
  - Gait disturbance [Recovering/Resolving]
  - Incoherent [Recovering/Resolving]
  - Disorientation [Recovering/Resolving]
